FAERS Safety Report 12458318 (Version 1)
Quarter: 2016Q2

REPORT INFORMATION
  Report Type: Spontaneous
  Country: PE (occurrence: PE)
  Receive Date: 20160613
  Receipt Date: 20160613
  Transmission Date: 20160815
  Serious: Yes (Other)
  Sender: FDA-Public Use
  Company Number: PE-AMGEN-PERSP2016073449

PATIENT
  Age: 83 Year
  Sex: Female

DRUGS (1)
  1. PROLIA [Suspect]
     Active Substance: DENOSUMAB
     Indication: OSTEOPOROSIS
     Dosage: 60 MG, CYC
     Route: 058
     Dates: start: 20130520, end: 20130520

REACTIONS (3)
  - Deafness [Not Recovered/Not Resolved]
  - Blindness [Not Recovered/Not Resolved]
  - Varicose ulceration [Not Recovered/Not Resolved]
